FAERS Safety Report 4294698-9 (Version None)
Quarter: 2004Q1

REPORT INFORMATION
  Report Type: 
  Country: None (occurrence: None)
  Receive Date: 20040211
  Receipt Date: 20040202
  Transmission Date: 20041129
  Serious: Yes (Other)
  Sender: FDA-Public Use
  Company Number: JP-JNJFOC-20040200970

PATIENT
  Age: 80 Year

DRUGS (1)
  1. RISPERDAL [Suspect]
     Indication: IMPULSE-CONTROL DISORDER
     Dosage: 0.5 MG , IN 1 DAY, ORAL : 2 -3 MG DAILY : 1 MG , IN 1 DAY, ORAL
     Route: 048

REACTIONS (2)
  - HAEMOGLOBIN DECREASED [None]
  - LEUKOPENIA [None]
